FAERS Safety Report 19041533 (Version 3)
Quarter: 2021Q2

REPORT INFORMATION
  Report Type: Spontaneous
  Country: US (occurrence: US)
  Receive Date: 20210323
  Receipt Date: 20210505
  Transmission Date: 20210717
  Serious: No
  Sender: FDA-Public Use
  Company Number: US-BEH-2021129442

PATIENT
  Age: 42 Year
  Sex: Female

DRUGS (6)
  1. HIZENTRA [Suspect]
     Active Substance: HUMAN IMMUNOGLOBULIN G
     Indication: HUMORAL IMMUNE DEFECT
     Dosage: 11 GRAM, QW
     Route: 058
     Dates: start: 20201029
  2. TYLENOL [Concomitant]
     Active Substance: ACETAMINOPHEN
     Indication: HYPERSENSITIVITY
  3. TYLENOL [Concomitant]
     Active Substance: ACETAMINOPHEN
     Indication: PREMEDICATION
  4. HIZENTRA [Suspect]
     Active Substance: HUMAN IMMUNOGLOBULIN G
     Indication: ASTHMA
     Dosage: 11 GRAM, QW
     Route: 058
     Dates: start: 20201124
  5. BENADRYL [Concomitant]
     Active Substance: DIPHENHYDRAMINE HYDROCHLORIDE
     Indication: HYPERSENSITIVITY
  6. BENADRYL [Concomitant]
     Active Substance: DIPHENHYDRAMINE HYDROCHLORIDE
     Indication: PREMEDICATION

REACTIONS (7)
  - Injection site erythema [Unknown]
  - Unevaluable event [Unknown]
  - Injection site pain [Unknown]
  - No adverse event [Unknown]
  - Injection site swelling [Unknown]
  - Injection site pruritus [Unknown]
  - Off label use [Unknown]
